FAERS Safety Report 6466357-5 (Version None)
Quarter: 2009Q4

REPORT INFORMATION
  Report Type: 
  Country: None (occurrence: None)
  Receive Date: 20091201
  Receipt Date: 20091201
  Transmission Date: 20100525
  Serious: No
  Sender: FDA-Public Use
  Company Number: None

PATIENT
  Age: 63 Year
  Sex: Male
  Weight: 97.977 kg

DRUGS (1)
  1. ALDARA [Suspect]
     Indication: ACTINIC KERATOSIS
     Dosage: ONE .25 MG PACKET EVERY OTHER DAY EPIDURAL
     Route: 008
     Dates: start: 20091024, end: 20091104

REACTIONS (4)
  - ACNE [None]
  - APPLICATION SITE HYPERSENSITIVITY [None]
  - DRUG EFFECT DECREASED [None]
  - SKIN INFECTION [None]
